FAERS Safety Report 22017674 (Version 2)
Quarter: 2023Q1

REPORT INFORMATION
  Report Type: Other
  Country: US (occurrence: None)
  Receive Date: 20230221
  Receipt Date: 20230227
  Transmission Date: 20230417
  Serious: Yes (Other)
  Sender: FDA-Public Use
  Company Number: US-ROCHE-3159174

PATIENT
  Age: 70 Year
  Sex: Female
  Weight: 63.560 kg

DRUGS (3)
  1. OCREVUS [Suspect]
     Active Substance: OCRELIZUMAB
     Indication: Primary progressive multiple sclerosis
     Dosage: ONGOING:YES
     Route: 065
     Dates: start: 20220723
  2. OCREVUS [Suspect]
     Active Substance: OCRELIZUMAB
     Route: 042
     Dates: start: 202207, end: 202208
  3. BENICAR [Concomitant]
     Active Substance: OLMESARTAN MEDOXOMIL

REACTIONS (13)
  - Pneumonia [Recovered/Resolved]
  - Pruritus [Not Recovered/Not Resolved]
  - Headache [Unknown]
  - Alopecia [Not Recovered/Not Resolved]
  - Acne [Recovered/Resolved]
  - Oral herpes [Recovered/Resolved]
  - Herpes zoster [Recovered/Resolved]
  - Gait disturbance [Not Recovered/Not Resolved]
  - Upper respiratory tract infection [Recovered/Resolved]
  - Respiratory syncytial virus infection [Recovered/Resolved]
  - Urinary tract infection [Recovered/Resolved]
  - Fungal infection [Not Recovered/Not Resolved]
  - Pain [Recovered/Resolved]

NARRATIVE: CASE EVENT DATE: 20220723
